FAERS Safety Report 8996696 (Version 1)
Quarter: 2012Q4

REPORT INFORMATION
  Report Type: Spontaneous
  Country: US (occurrence: None)
  Receive Date: 20121228
  Receipt Date: 20121228
  Transmission Date: 20130627
  Serious: No
  Sender: FDA-Public Use
  Company Number: None

PATIENT
  Sex: Male

DRUGS (6)
  1. DEPAKOTE [Suspect]
     Indication: ANGER
  2. DEPAKOTE [Suspect]
     Indication: ADHD
  3. DEPAKOTE [Suspect]
     Indication: ASPERGER^S DISORDER
  4. DEPAKOTE [Suspect]
     Indication: PERVASIVE DEVELOPMENTAL DISORDER
  5. DEPAKOTE [Suspect]
     Indication: IRRITABLE
  6. DEPAKOTE [Suspect]
     Indication: BIPOLAR DISORDER

REACTIONS (1)
  - Drug ineffective [None]
